FAERS Safety Report 4667850-8 (Version None)
Quarter: 2005Q2

REPORT INFORMATION
  Report Type: 
  Country: None (occurrence: None)
  Receive Date: 20050520
  Receipt Date: 20040407
  Transmission Date: 20051028
  Serious: Yes (Congenital Anomaly)
  Sender: FDA-Public Use
  Company Number: BR-ROCHE-364062

PATIENT
  Sex: Male
  Weight: 3.6 kg

DRUGS (3)
  1. ROACUTAN [Suspect]
     Indication: ACNE
     Dates: start: 20030715, end: 20030915
  2. ROACUTAN [Suspect]
     Dates: start: 20030915, end: 20040215
  3. DIANE [Concomitant]
     Indication: CONTRACEPTION
     Dates: start: 20030615, end: 20031215

REACTIONS (5)
  - ANOMALY OF EXTERNAL EAR CONGENITAL [None]
  - CAESAREAN SECTION [None]
  - CONGENITAL CARDIOVASCULAR ANOMALY [None]
  - DRUG EXPOSURE DURING PREGNANCY [None]
  - EAR MALFORMATION [None]
